FAERS Safety Report 10440148 (Version 1)
Quarter: 2014Q3

REPORT INFORMATION
  Report Type: Spontaneous
  Country: US (occurrence: US)
  Receive Date: 20140908
  Receipt Date: 20140908
  Transmission Date: 20150326
  Serious: No
  Sender: FDA-Public Use
  Company Number: US-BRISTOL-MYERS SQUIBB COMPANY-19433341

PATIENT
  Age: 67 Year
  Sex: Male

DRUGS (15)
  1. ALLOPURINOL. [Concomitant]
     Active Substance: ALLOPURINOL
  2. BIOTENE MOUTHWASH [Concomitant]
  3. NASONEX [Concomitant]
     Active Substance: MOMETASONE FUROATE
  4. LAMICTAL [Concomitant]
     Active Substance: LAMOTRIGINE
  5. LASIX [Concomitant]
     Active Substance: FUROSEMIDE
  6. TESTOSTERONE. [Concomitant]
     Active Substance: TESTOSTERONE
  7. TRADJENTA [Concomitant]
     Active Substance: LINAGLIPTIN
  8. GLIPIZIDE. [Concomitant]
     Active Substance: GLIPIZIDE
  9. PLAVIX [Concomitant]
     Active Substance: CLOPIDOGREL BISULFATE
  10. NEXIUM [Concomitant]
     Active Substance: ESOMEPRAZOLE MAGNESIUM
  11. ABILIFY [Suspect]
     Active Substance: ARIPIPRAZOLE
     Indication: DEPRESSION
     Route: 048
  12. ASPIRIN. [Concomitant]
     Active Substance: ASPIRIN
  13. LIPITOR [Concomitant]
     Active Substance: ATORVASTATIN CALCIUM
  14. LEXAPRO [Concomitant]
     Active Substance: ESCITALOPRAM OXALATE
  15. XALATAN [Concomitant]
     Active Substance: LATANOPROST

REACTIONS (4)
  - Weight increased [Unknown]
  - Dyskinesia [Unknown]
  - Tongue ulceration [Unknown]
  - Tongue biting [Unknown]
